FAERS Safety Report 5568818-X (Version None)
Quarter: 2007Q4

REPORT INFORMATION
  Report Type: 
  Country: None (occurrence: None)
  Receive Date: 20071220
  Receipt Date: 20070124
  Transmission Date: 20080405
  Serious: No
  Sender: FDA-Public Use
  Company Number: A0636886A

PATIENT
  Age: 70 Year
  Sex: Male

DRUGS (15)
  1. AVODART [Suspect]
     Indication: DIHYDROTESTOSTERONE INCREASED
     Route: 048
     Dates: start: 20060322
  2. LEUPROLIDE ACETATE [Concomitant]
  3. LUPRON [Concomitant]
  4. ISOPHANE INSULIN [Concomitant]
  5. COZAAR [Concomitant]
  6. BUMEX [Concomitant]
  7. POTASSIUM CHLORIDE [Concomitant]
  8. NORTRIPTYLINE HCL [Concomitant]
  9. ZOCOR [Concomitant]
  10. CARDURA [Concomitant]
  11. DIAZEPAM [Concomitant]
  12. SYNTHROID [Concomitant]
  13. ASPIRIN [Concomitant]
  14. HUMALOG [Concomitant]
  15. REGULAR INSULIN [Concomitant]

REACTIONS (1)
  - DIHYDROTESTOSTERONE INCREASED [None]
